FAERS Safety Report 18060936 (Version 2)
Quarter: 2021Q2

REPORT INFORMATION
  Report Type: Spontaneous
  Country: US (occurrence: US)
  Receive Date: 20200723
  Receipt Date: 20210514
  Transmission Date: 20210717
  Serious: Yes (Other)
  Sender: FDA-Public Use
  Company Number: US-MYLANLABS-2020M1066536

PATIENT
  Age: 65 Year
  Sex: Female
  Weight: 78 kg

DRUGS (12)
  1. VALSARTAN AND HYDROCHLOROTHIAZIDE TABLETS, USP [Suspect]
     Active Substance: HYDROCHLOROTHIAZIDE\VALSARTAN
     Indication: HYPERTENSION
     Dosage: 160?25MG
     Dates: start: 20121017, end: 20130412
  2. VALSARTAN AND HYDROCHLOROTHIAZIDE [Suspect]
     Active Substance: HYDROCHLOROTHIAZIDE\VALSARTAN
     Dosage: 160?25MG
     Dates: start: 20140809, end: 20150206
  3. VALSARTAN AND HYDROCHLOROTHIAZIDE [Suspect]
     Active Substance: HYDROCHLOROTHIAZIDE\VALSARTAN
     Dosage: 160?25MG
     Dates: start: 20150206, end: 20160703
  4. VALSARTAN AND HYDROCHLOROTHIAZIDE [Suspect]
     Active Substance: HYDROCHLOROTHIAZIDE\VALSARTAN
     Dosage: 160?25MG
     Dates: start: 20180319, end: 20190330
  5. VALSARTAN AND HYDROCHLOROTHIAZIDE [Suspect]
     Active Substance: HYDROCHLOROTHIAZIDE\VALSARTAN
     Dosage: 160?25MG
     Dates: start: 20190326, end: 20190627
  6. DIOVAN HCT [Suspect]
     Active Substance: HYDROCHLOROTHIAZIDE\VALSARTAN
     Dosage: 160?25MG
     Dates: start: 20120910, end: 20121010
  7. VALSARTAN AND HYDROCHLOROTHIAZIDE [Suspect]
     Active Substance: HYDROCHLOROTHIAZIDE\VALSARTAN
     Dosage: 160?25MG
     Dates: start: 20170801, end: 20180128
  8. VALSARTAN AND HYDROCHLOROTHIAZIDE [Suspect]
     Active Substance: HYDROCHLOROTHIAZIDE\VALSARTAN
     Dosage: 160?25MG
     Dates: start: 20160705, end: 20161030
  9. VALSARTAN AND HYDROCHLOROTHIAZIDE [Suspect]
     Active Substance: HYDROCHLOROTHIAZIDE\VALSARTAN
     Indication: HYPERTENSION
     Dosage: 160?25MG
     Dates: start: 20130408, end: 20140604
  10. VALSARTAN AND HYDROCHLOROTHIAZIDE [Suspect]
     Active Substance: HYDROCHLOROTHIAZIDE\VALSARTAN
     Dosage: 160?25MG
     Dates: start: 20161102, end: 20170531
  11. VALSARTAN AND HYDROCHLOROTHIAZIDE [Suspect]
     Active Substance: HYDROCHLOROTHIAZIDE\VALSARTAN
     Dosage: 160?25MG
     Dates: start: 20140605, end: 20140605
  12. DIOVAN HCT [Suspect]
     Active Substance: HYDROCHLOROTHIAZIDE\VALSARTAN
     Indication: HYPERTENSION
     Dosage: 160?25MG
     Dates: start: 20120712, end: 20120811

REACTIONS (2)
  - Vulval cancer [Recovering/Resolving]
  - Uterine cancer [Unknown]

NARRATIVE: CASE EVENT DATE: 20140929
